FAERS Safety Report 7382464-7 (Version None)
Quarter: 2011Q1

REPORT INFORMATION
  Report Type: 
  Country: None (occurrence: None)
  Receive Date: 20110329
  Receipt Date: 20110315
  Transmission Date: 20110831
  Serious: Yes (Death, Other)
  Sender: FDA-Public Use
  Company Number: FR-BAYER-2011-023811

PATIENT
  Age: 62 Year
  Sex: Male

DRUGS (8)
  1. NEXAVAR [Suspect]
     Dosage: 400 MG, BID
     Dates: start: 20071101, end: 20080401
  2. CLOPIDOGREL [Concomitant]
     Indication: CARDIAC DISORDER
     Dosage: 75 MG, UNK
  3. PERINDOPRIL [Concomitant]
     Indication: CARDIAC DISORDER
     Dosage: 2 MG, UNK
  4. ACETYLSALICYLATE CALCIUM [Concomitant]
     Indication: CARDIAC DISORDER
     Dosage: 75 MG, UNK
  5. ATENOLOL [Concomitant]
     Indication: CARDIAC DISORDER
     Dosage: 50 MG, UNK
  6. NEXAVAR [Suspect]
     Dosage: 600 MG, QD
     Route: 048
     Dates: start: 20080101
  7. ATORVASTATIN CALCIUM [Concomitant]
     Indication: CARDIAC DISORDER
     Dosage: 80 MG, UNK
  8. IMATINIB [Concomitant]
     Indication: CHRONIC MYELOID LEUKAEMIA
     Dosage: 400 MG, QD
     Dates: start: 20070601

REACTIONS (6)
  - CARDIOGENIC SHOCK [None]
  - CHEST PAIN [None]
  - DIARRHOEA [None]
  - ACUTE CORONARY SYNDROME [None]
  - ACUTE MYOCARDIAL INFARCTION [None]
  - PALMAR-PLANTAR ERYTHRODYSAESTHESIA SYNDROME [None]
